FAERS Safety Report 13648167 (Version 1)
Quarter: 2017Q2

REPORT INFORMATION
  Report Type: Report from Study
  Country: US (occurrence: US)
  Receive Date: 20170613
  Receipt Date: 20170613
  Transmission Date: 20170830
  Serious: Yes (Hospitalization)
  Sender: FDA-Public Use
  Company Number: US-CORCEPT THERAPEUTICS INC.-US-2017CRT000420

PATIENT

DRUGS (3)
  1. KORLYM [Suspect]
     Active Substance: MIFEPRISTONE
     Indication: CUSHING^S SYNDROME
     Dosage: 300 MG, QD
     Route: 048
     Dates: start: 20151203, end: 201512
  2. KORLYM [Suspect]
     Active Substance: MIFEPRISTONE
     Indication: IMPAIRED FASTING GLUCOSE
     Dosage: 600 MG, QD
     Route: 048
     Dates: start: 201512, end: 201604
  3. KORLYM [Suspect]
     Active Substance: MIFEPRISTONE
     Dosage: 900 MG, QD
     Route: 048
     Dates: start: 201605

REACTIONS (8)
  - Migraine [Unknown]
  - Hypertension [Not Recovered/Not Resolved]
  - Gait disturbance [Unknown]
  - Vision blurred [Unknown]
  - Anxiety [Not Recovered/Not Resolved]
  - Mental impairment [Unknown]
  - Family stress [Unknown]
  - Fatigue [Unknown]

NARRATIVE: CASE EVENT DATE: 20170528
